FAERS Safety Report 13189911 (Version 3)
Quarter: 2017Q1

REPORT INFORMATION
  Report Type: Report from Study
  Country: US (occurrence: US)
  Receive Date: 20170206
  Receipt Date: 20170314
  Transmission Date: 20170428
  Serious: No
  Sender: FDA-Public Use
  Company Number: US-AMGEN-USASL2017017691

PATIENT
  Age: 74 Year
  Sex: Male

DRUGS (1)
  1. ENBREL [Suspect]
     Active Substance: ETANERCEPT
     Indication: PSORIATIC ARTHROPATHY
     Dosage: 50 MG, QWK
     Route: 065

REACTIONS (5)
  - Fatigue [Unknown]
  - Blood iron abnormal [Unknown]
  - Wrong technique in product usage process [Unknown]
  - Incorrect product storage [Unknown]
  - Asthenia [Unknown]

NARRATIVE: CASE EVENT DATE: 20170120
